FAERS Safety Report 8624821-4 (Version None)
Quarter: 2012Q3

REPORT INFORMATION
  Report Type: 
  Country: None (occurrence: None)
  Receive Date: 20120827
  Receipt Date: 20120817
  Transmission Date: 20120928
  Serious: Yes (Other)
  Sender: FDA-Public Use
  Company Number: US-ASTRAZENECA-2011SE11840

PATIENT
  Age: 67 Year
  Sex: Female

DRUGS (3)
  1. CRESTOR [Suspect]
     Route: 048
  2. NEXIUM [Suspect]
     Route: 048
  3. ANASTROZOLE [Suspect]
     Route: 048

REACTIONS (2)
  - LOWER LIMB FRACTURE [None]
  - BREAST CANCER [None]
